FAERS Safety Report 7409453-8 (Version None)
Quarter: 2011Q2

REPORT INFORMATION
  Report Type: 
  Country: None (occurrence: None)
  Receive Date: 20110407
  Receipt Date: 20110407
  Transmission Date: 20111010
  Serious: No
  Sender: FDA-Public Use
  Company Number: None

PATIENT
  Age: 67 Year
  Sex: Male
  Weight: 60 kg

DRUGS (2)
  1. FENTANYL [Suspect]
     Dosage: ONCE
     Dates: start: 20110113, end: 20110113
  2. MIDAZOLAM [Suspect]
     Dosage: ONCE
     Dates: start: 20110113, end: 20110113

REACTIONS (2)
  - MENTAL STATUS CHANGES [None]
  - SEDATION [None]
